FAERS Safety Report 9411556 (Version 2)
Quarter: 2013Q3

REPORT INFORMATION
  Report Type: Spontaneous
  Country: DE (occurrence: DE)
  Receive Date: 20130722
  Receipt Date: 20130729
  Transmission Date: 20140515
  Serious: Yes (Congenital Anomaly, Other)
  Sender: FDA-Public Use
  Company Number: DE-RANBAXY-2013RR-71160

PATIENT
  Sex: Male
  Weight: 2.71 kg

DRUGS (5)
  1. RAMIPRIL [Suspect]
     Indication: MATERNAL EXPOSURE DURING PREGNANCY
     Dosage: 20 MG/DAY (10 MG-0-10),BETWEEN GESTATIONAL WEEKS 0-32.
     Route: 064
     Dates: start: 20070215, end: 20071001
  2. MOXONIDINE [Suspect]
     Indication: MATERNAL EXPOSURE DURING PREGNANCY
     Dosage: 0.4 MG/DAY (0.2 MG--0.2), BETWEEN GESTATIONAL WEEKS 0-2.4
     Route: 064
     Dates: start: 20070215, end: 20071001
  3. TORASEMID CORAX [Suspect]
     Indication: MATERNAL EXPOSURE DURING PREGNANCY
     Dosage: 10 MG/DAY (1X10 MG), BETWEEN GESTATIONAL WEEKS 0-32.4
     Route: 064
     Dates: start: 20070215, end: 20071001
  4. AMLODIPINE [Suspect]
     Indication: MATERNAL EXPOSURE DURING PREGNANCY
     Dosage: 10 MG/DAY (5 MG-0-5), BETWEEN GESTATIONAL WEEKS 0-32.4
     Route: 064
     Dates: start: 20070215, end: 20071001
  5. METOPROLOL CORAX [Concomitant]
     Indication: MATERNAL EXPOSURE DURING PREGNANCY
     Dosage: 400 MG/DAY (200 MG-0-200), BETWEEN GESTATIONAL WEEKS 0-32.4
     Route: 064
     Dates: start: 20070215, end: 20071001

REACTIONS (8)
  - Atrial septal defect [Recovered/Resolved]
  - Cranial sutures widening [Not Recovered/Not Resolved]
  - Foot deformity [Not Recovered/Not Resolved]
  - Cardiac septal hypertrophy [Recovered/Resolved]
  - Abnormal palmar/plantar creases [Not Recovered/Not Resolved]
  - Dysmorphism [Not Recovered/Not Resolved]
  - Strabismus [Unknown]
  - Foetal exposure during pregnancy [None]
